FAERS Safety Report 5169323-5 (Version None)
Quarter: 2006Q4

REPORT INFORMATION
  Report Type: 
  Country: None (occurrence: None)
  Receive Date: 20061201
  Receipt Date: 20061128
  Transmission Date: 20070319
  Serious: Yes (Hospitalization)
  Sender: FDA-Public Use
  Company Number: FR-2006-036779

PATIENT
  Age: 83 Year
  Sex: Male

DRUGS (7)
  1. CAMPATH [Suspect]
     Indication: CHRONIC LYMPHOCYTIC LEUKAEMIA RECURRENT
     Dosage: 30 MG, 3X/WEEK, INTRAVENOUS
     Route: 042
     Dates: start: 20061101
  2. RYTHMOL [Concomitant]
  3. ALLOPURINOL [Concomitant]
  4. AMLODIPINE BESYLATE [Concomitant]
  5. FONZYLANE (BUFLOMEDIL HYDROCHLORIDE) [Concomitant]
  6. PRAVASTATIN [Concomitant]
  7. PREVISCAN (FLUINDIONE) [Concomitant]

REACTIONS (2)
  - CHOLESTASIS [None]
  - PLATELET COUNT DECREASED [None]
